FAERS Safety Report 14327902 (Version 3)
Quarter: 2018Q1

REPORT INFORMATION
  Report Type: Spontaneous
  Country: CN (occurrence: CN)
  Receive Date: 20171227
  Receipt Date: 20180202
  Transmission Date: 20180509
  Serious: Yes (Other)
  Sender: FDA-Public Use
  Company Number: PHHY2017CN193150

PATIENT
  Age: 4 Year
  Sex: Male

DRUGS (3)
  1. LAMOTRIGINE. [Concomitant]
     Active Substance: LAMOTRIGINE
     Indication: PRODUCT USED FOR UNKNOWN INDICATION
     Dosage: 1.2 DF, BID
     Route: 065
     Dates: start: 201603
  2. TRILEPTAL [Suspect]
     Active Substance: OXCARBAZEPINE
     Indication: PARTIAL SEIZURES
     Dosage: 20 ML, BID
     Route: 048
     Dates: start: 201603
  3. TRILEPTAL [Suspect]
     Active Substance: OXCARBAZEPINE
     Dosage: UNK
     Route: 048
     Dates: start: 20171217

REACTIONS (1)
  - Pain in extremity [Recovering/Resolving]

NARRATIVE: CASE EVENT DATE: 20171217
